FAERS Safety Report 17754541 (Version 1)
Quarter: 2020Q2

REPORT INFORMATION
  Report Type: Spontaneous
  Country: FR (occurrence: FR)
  Receive Date: 20200506
  Receipt Date: 20200506
  Transmission Date: 20200714
  Serious: Yes (Other)
  Sender: FDA-Public Use
  Company Number: NVSC2020FR120381

PATIENT
  Age: 48 Year
  Sex: Male

DRUGS (3)
  1. CLARITHROMYCINE SANDOZ 250 MG FILMOMHULDE TABLETTEN [Suspect]
     Active Substance: CLARITHROMYCIN
     Indication: ATYPICAL MYCOBACTERIAL INFECTION
     Dosage: 1000 MG, QD
     Route: 048
     Dates: start: 201904
  2. DEXAMBUTOL [Suspect]
     Active Substance: ETHAMBUTOL HYDROCHLORIDE
     Indication: ATYPICAL MYCOBACTERIAL INFECTION
     Dosage: 2 DF, QD
     Route: 048
     Dates: start: 201904
  3. RIFAMPICINE [Suspect]
     Active Substance: RIFAMPIN
     Indication: ATYPICAL MYCOBACTERIAL INFECTION
     Dosage: 600 MG, QD
     Route: 048
     Dates: start: 201904

REACTIONS (1)
  - Inflammatory bowel disease [Recovering/Resolving]

NARRATIVE: CASE EVENT DATE: 201910
